FAERS Safety Report 21779812 (Version 2)
Quarter: 2023Q1

REPORT INFORMATION
  Report Type: Spontaneous
  Country: JP (occurrence: JP)
  Receive Date: 20221226
  Receipt Date: 20230129
  Transmission Date: 20230418
  Serious: No
  Sender: FDA-Public Use
  Company Number: JP-TAKEDA-2022TJP079464

PATIENT
  Age: 75 Year
  Sex: Female
  Weight: 52 kg

DRUGS (2)
  1. ENTYVIO [Suspect]
     Active Substance: VEDOLIZUMAB
     Indication: Pouchitis
     Dosage: 300 MILLIGRAM
     Route: 041
     Dates: start: 20221221
  2. ENTYVIO [Suspect]
     Active Substance: VEDOLIZUMAB
     Dosage: 300 MILLIGRAM, Q8WEEKS
     Route: 041

REACTIONS (2)
  - Dermatitis [Recovered/Resolved]
  - Administration site bruise [Recovered/Resolved]

NARRATIVE: CASE EVENT DATE: 20221222
